FAERS Safety Report 15755118 (Version 1)
Quarter: 2018Q4

REPORT INFORMATION
  Report Type: Spontaneous
  Country: US (occurrence: US)
  Receive Date: 20181224
  Receipt Date: 20181224
  Transmission Date: 20190205
  Serious: Yes (Other)
  Sender: FDA-Public Use
  Company Number: US-SUN PHARMACEUTICAL INDUSTRIES LTD-2018R1-194507

PATIENT
  Age: 30 Year
  Sex: Male

DRUGS (6)
  1. METHIMAZOLE. [Suspect]
     Active Substance: METHIMAZOLE
     Indication: ENDOCRINE OPHTHALMOPATHY
  2. METHIMAZOLE. [Suspect]
     Active Substance: METHIMAZOLE
     Indication: HYPERTHYROIDISM
     Dosage: 20 MILLIGRAM, TID
     Route: 065
  3. METHIMAZOLE. [Suspect]
     Active Substance: METHIMAZOLE
     Indication: GOITRE
  4. PROPRANOLOL [Concomitant]
     Active Substance: PROPRANOLOL HYDROCHLORIDE
     Indication: HYPERTHYROIDISM
     Dosage: 60 MILLIGRAM, TID
     Route: 065
  5. PROPRANOLOL [Concomitant]
     Active Substance: PROPRANOLOL HYDROCHLORIDE
     Indication: GOITRE
  6. PROPRANOLOL [Concomitant]
     Active Substance: PROPRANOLOL HYDROCHLORIDE
     Indication: ENDOCRINE OPHTHALMOPATHY

REACTIONS (2)
  - Agranulocytosis [Unknown]
  - Hyperthyroidism [Recovering/Resolving]
